FAERS Safety Report 7911747 (Version 3)
Quarter: 2012Q4

REPORT INFORMATION
  Report Type: 
  Country: US (occurrence: US)
  Receive Date: 20110422
  Receipt Date: 20121214
  Transmission Date: 20130627
  Serious: Yes (Hospitalization)
  Sender: FDA-Public Use
  Company Number: US-B.I. PHARMACEUTICALS,INC./RIDGEFIELD-2011-BP-11213BP

PATIENT
  Age: 88 Year
  Sex: Female

DRUGS (7)
  1. PRADAXA [Suspect]
     Indication: ATRIAL FIBRILLATION
     Dosage: 150 mg
     Route: 048
     Dates: start: 201012, end: 201210
  2. PRADAXA [Suspect]
     Indication: CEREBROVASCULAR ACCIDENT PROPHYLAXIS
     Dosage: 300 mg
     Route: 048
     Dates: start: 201210
  3. DIOVAN [Concomitant]
     Indication: CARDIAC DISORDER
     Dosage: 320 mg
     Dates: start: 2010
  4. CARDIA [Concomitant]
     Indication: CARDIAC DISORDER
     Dosage: 180 mg
     Dates: start: 2010
  5. POTASSIUM [Concomitant]
  6. LASIX [Concomitant]
     Indication: SWELLING
  7. VITAMINS [Concomitant]

REACTIONS (5)
  - Transient ischaemic attack [Recovered/Resolved]
  - Transient ischaemic attack [Recovered/Resolved]
  - Muscle spasms [Not Recovered/Not Resolved]
  - Contusion [Recovered/Resolved]
  - Contusion [Not Recovered/Not Resolved]
